FAERS Safety Report 5159094-0 (Version None)
Quarter: 2006Q4

REPORT INFORMATION
  Report Type: 
  Country: None (occurrence: None)
  Receive Date: 20061128
  Receipt Date: 20051004
  Transmission Date: 20070319
  Serious: Yes (Death)
  Sender: FDA-Public Use
  Company Number: DE-BOEHRINGER INGELHEIM PHARMACEUTICALS, INC.-2006-DE-06286DE

PATIENT
  Sex: Female
  Weight: 101 kg

DRUGS (7)
  1. MICARDIS [Suspect]
     Indication: ESSENTIAL HYPERTENSION
     Dates: start: 20050118
  2. MICARDIS [Suspect]
     Dates: start: 20050215
  3. BETA BLOCKING AGENTS [Concomitant]
     Indication: HYPERTENSION
  4. DIURETICS [Concomitant]
     Indication: HYPERTENSION
  5. CALCIUM ANTAGONIST [Concomitant]
     Indication: HYPERTENSION
  6. STATIN [Concomitant]
     Indication: METABOLIC DISORDER
  7. ANTI-DIABETICS [Concomitant]
     Indication: DIABETES MELLITUS

REACTIONS (1)
  - DEATH [None]
